FAERS Safety Report 7079019-0 (Version None)
Quarter: 2010Q4

REPORT INFORMATION
  Report Type: 
  Country: None (occurrence: None)
  Receive Date: 20101102
  Receipt Date: 20100726
  Transmission Date: 20110411
  Serious: Yes (Hospitalization)
  Sender: FDA-Public Use
  Company Number: US-BAYER-201023105NA

PATIENT
  Age: 35 Year
  Sex: Female
  Weight: 68 kg

DRUGS (7)
  1. YAZ [Suspect]
  2. YASMIN [Suspect]
     Indication: CONTRACEPTION
     Dates: start: 20060103, end: 20070728
  3. ZOCOR [Concomitant]
  4. ASPIRIN [Concomitant]
  5. CELEXA [Concomitant]
  6. BACLOFEN [Concomitant]
  7. CALCIUM VIT D [Concomitant]

REACTIONS (3)
  - APHASIA [None]
  - HEMIPLEGIA [None]
  - ISCHAEMIC STROKE [None]
